FAERS Safety Report 13328489 (Version 1)
Quarter: 2017Q1

REPORT INFORMATION
  Report Type: Spontaneous
  Country: US (occurrence: US)
  Receive Date: 20170310
  Receipt Date: 20170310
  Transmission Date: 20170428
  Serious: Yes (Death, Hospitalization)
  Sender: FDA-Public Use
  Company Number: None

PATIENT
  Age: 33 Year
  Sex: Female

DRUGS (7)
  1. MAALOX ANTACID [Concomitant]
     Active Substance: ALUMINUM HYDROXIDE\DIMETHICONE\MAGNESIUM HYDROXIDE
  2. FIORICET [Concomitant]
     Active Substance: ACETAMINOPHEN\BUTALBITAL\CAFFEINE
  3. VITAMIN B COMPLEX [Concomitant]
     Active Substance: CYANOCOBALAMIN\DEXPANTHENOL\NIACINAMIDE\PYRIDOXINE HYDROCHLORIDE\RIBOFLAVIN 5^-PHOSPHATE SODIUM\THIAMINE HYDROCHLORIDE\VITAMIN B COMPLEX
  4. KLONOPIN [Concomitant]
     Active Substance: CLONAZEPAM
  5. PEMBROLIZUMAB. [Suspect]
     Active Substance: PEMBROLIZUMAB
  6. VITAMIN D3 [Concomitant]
     Active Substance: CHOLECALCIFEROL
  7. DURICEF [Concomitant]
     Active Substance: CEFADROXIL

REACTIONS (9)
  - Mental status changes [None]
  - Malignant neoplasm progression [None]
  - Constipation [None]
  - Confusional state [None]
  - Lethargy [None]
  - Unresponsive to stimuli [None]
  - Metastases to bone [None]
  - Pain [None]
  - Tachypnoea [None]

NARRATIVE: CASE EVENT DATE: 20170130
